FAERS Safety Report 8084414-7 (Version None)
Quarter: 2012Q1

REPORT INFORMATION
  Report Type: 
  Country: None (occurrence: None)
  Receive Date: 20120128
  Receipt Date: 20110325
  Transmission Date: 20120608
  Serious: No
  Sender: FDA-Public Use
  Company Number: US-ABBOTT-11P-163-0714376-00

PATIENT
  Age: 54 Year
  Sex: Female

DRUGS (14)
  1. TYLENOL W/ CODEINE NO. 3 [Concomitant]
     Indication: ARTHRALGIA
  2. PROMETHAZINE [Concomitant]
     Indication: ARTHRALGIA
  3. ZANTAC [Concomitant]
     Indication: GASTROOESOPHAGEAL REFLUX DISEASE
  4. VITAMIN B-12 [Concomitant]
     Indication: VITAMIN SUPPLEMENTATION
  5. CLONAZEPAM [Concomitant]
     Indication: ANXIETY
     Dosage: 1-2 TABLETS DAILY
  6. FOLIC ACID [Concomitant]
     Indication: VITAMIN SUPPLEMENTATION
  7. HYDROCHLORAT [Concomitant]
     Indication: HYPERTENSION
  8. PREDNISONE TAB [Concomitant]
     Indication: ARTHRALGIA
  9. CRESTOR [Concomitant]
     Indication: BLOOD CHOLESTEROL INCREASED
  10. HUMIRA [Suspect]
     Indication: RHEUMATOID ARTHRITIS
     Dates: start: 20080101
  11. OTC MULTI VIT [Concomitant]
     Indication: PRODUCT USED FOR UNKNOWN INDICATION
  12. PROMETHAZINE [Concomitant]
     Indication: ANXIETY
  13. METHOTREXATE [Concomitant]
     Indication: RHEUMATOID ARTHRITIS
  14. VIT D WITH CALCIUM [Concomitant]
     Indication: VITAMIN SUPPLEMENTATION

REACTIONS (2)
  - INJECTION SITE PAIN [None]
  - DRUG ADMINISTRATION ERROR [None]
